FAERS Safety Report 9227157 (Version 1)
Quarter: 2013Q2

REPORT INFORMATION
  Report Type: Spontaneous
  Country: US (occurrence: None)
  Receive Date: 20130410
  Receipt Date: 20130410
  Transmission Date: 20140414
  Serious: Yes (Death, Hospitalization)
  Sender: FDA-Public Use
  Company Number: 2013-0537

PATIENT
  Age: 66 Year
  Sex: Male

DRUGS (2)
  1. KYPROLIS [Suspect]
     Indication: PLASMA CELL MYELOMA
     Route: 042
     Dates: start: 20121102, end: 20121109
  2. DEXAMETHASONE [Concomitant]

REACTIONS (3)
  - Agitation [None]
  - Hallucination [None]
  - Plasma cell myeloma [None]
